FAERS Safety Report 13770358 (Version 1)
Quarter: 2017Q3

REPORT INFORMATION
  Report Type: Spontaneous
  Country: US (occurrence: US)
  Receive Date: 20170719
  Receipt Date: 20170719
  Transmission Date: 20171127
  Serious: No
  Sender: FDA-Public Use
  Company Number: None

PATIENT
  Sex: Female

DRUGS (1)
  1. SUBOXONE [Suspect]
     Active Substance: BUPRENORPHINE HYDROCHLORIDE\NALOXONE HYDROCHLORIDE
     Indication: DRUG USE DISORDER
     Dosage: ?          OTHER DOSE:MG;?
     Route: 060
     Dates: start: 20170413, end: 20170421

REACTIONS (4)
  - Migraine [None]
  - Vomiting [None]
  - Nausea [None]
  - Pain [None]
